FAERS Safety Report 7876058-4 (Version None)
Quarter: 2011Q4

REPORT INFORMATION
  Report Type: 
  Country: None (occurrence: None)
  Receive Date: 20111031
  Receipt Date: 20111025
  Transmission Date: 20120403
  Serious: Yes (Death, Other)
  Sender: FDA-Public Use
  Company Number: SE-SANOFI-AVENTIS-2011SA070978

PATIENT

DRUGS (8)
  1. CELECOXIB [Suspect]
     Indication: NON-SMALL CELL LUNG CANCER
     Route: 065
  2. PEMETREXED [Suspect]
     Indication: NON-SMALL CELL LUNG CANCER
     Route: 065
  3. CARBOPLATIN [Suspect]
     Indication: NON-SMALL CELL LUNG CANCER
     Route: 065
  4. VINORELBINE TARTRATE [Suspect]
     Indication: NON-SMALL CELL LUNG CANCER
     Route: 065
  5. THERAPEUTIC RADIOPHARMACEUTICALS [Concomitant]
  6. DOCETAXEL [Suspect]
     Indication: NON-SMALL CELL LUNG CANCER
     Route: 065
  7. GEMCITABINE HYDROCHLORIDE [Suspect]
     Indication: NON-SMALL CELL LUNG CANCER
     Route: 065
  8. ERLOTINIB HYDROCHLORIDE [Suspect]
     Indication: NON-SMALL CELL LUNG CANCER
     Route: 065

REACTIONS (9)
  - MYOCARDIAL ISCHAEMIA [None]
  - THROMBOCYTOPENIA [None]
  - ANAEMIA [None]
  - CEREBRAL ISCHAEMIA [None]
  - EMBOLISM [None]
  - THROMBOSIS [None]
  - LEUKOPENIA [None]
  - GASTROINTESTINAL ULCER [None]
  - MYOCARDIAL INFARCTION [None]
